FAERS Safety Report 7419901-5 (Version None)
Quarter: 2011Q2

REPORT INFORMATION
  Report Type: 
  Country: None (occurrence: None)
  Receive Date: 20110418
  Receipt Date: 20100923
  Transmission Date: 20111010
  Serious: Yes (Hospitalization, Other)
  Sender: FDA-Public Use
  Company Number: US-BAYER-201041787NA

PATIENT
  Age: 56 Year
  Sex: Male
  Weight: 113.8 kg

DRUGS (57)
  1. COLCHICINE [Concomitant]
  2. MAGNESIUM [Concomitant]
  3. LISINOPRIL [Concomitant]
  4. VASOPRESSIN [Concomitant]
     Dosage: 3 U Q1HR
     Route: 042
     Dates: start: 20050622
  5. PANCURONIUM BROMIDE [Concomitant]
     Dosage: 2.0 MG, UNK
     Route: 042
     Dates: start: 20050622
  6. HEPARIN [Concomitant]
     Dosage: 3500 U, UNK
     Route: 042
     Dates: start: 20050622
  7. MUPIROCIN [Concomitant]
  8. SOTALOL [Concomitant]
  9. IRON SULFATETHIAMIN COMPOUND TAB [Concomitant]
  10. MIDAZOLAM [Concomitant]
     Dosage: 8.0 MG, UNK
     Route: 042
     Dates: start: 20050622
  11. CEFUROXIME [Concomitant]
     Dosage: 1.50 MG, UNK
     Route: 042
     Dates: start: 20050622
  12. CALCIUM [Concomitant]
     Dosage: 500 MG
     Route: 042
     Dates: start: 20050622
  13. COLACE [Concomitant]
  14. ALLOPURINOL [Concomitant]
  15. PRAVASTATIN [Concomitant]
  16. INSULIN [Concomitant]
     Dosage: 4 U, Q1HR
     Route: 042
     Dates: start: 20050622
  17. TRASYLOL [Suspect]
     Indication: HEART TRANSPLANT
     Dosage: 50 ML, Q1HR
     Route: 042
     Dates: start: 20050622, end: 20050622
  18. VICODIN [Concomitant]
  19. RED BLOOD CELLS [Concomitant]
     Dosage: 2 U, UNK
     Route: 042
     Dates: start: 20050622
  20. INSULIN [Concomitant]
     Dosage: 2 U, UNK
     Route: 058
     Dates: start: 20050622
  21. MILRINONE [Concomitant]
     Dosage: 0.250 MCG/KG/MINUTE
     Route: 042
     Dates: start: 20050622
  22. PANCURONIUM BROMIDE [Concomitant]
     Dosage: 10.0 MG, UNK
     Route: 042
     Dates: start: 20050622
  23. NOREPINEPHRINE BITARTRATE [Concomitant]
     Dosage: 0.05 MCG/KG/MINUTE
     Route: 042
     Dates: start: 20050622
  24. TRASYLOL [Suspect]
     Dosage: 200 ML LOADING DOSE
     Route: 042
     Dates: start: 20050622
  25. ZANTAC [Concomitant]
  26. NYSTATIN [Concomitant]
  27. DOXYCYCLINE [Concomitant]
  28. ACETAMINOPHEN [Concomitant]
  29. NORTRIPTYLINE HCL [Concomitant]
  30. PLATELETS [Concomitant]
     Dosage: 10 UNK, UNK
     Route: 042
     Dates: start: 20050622
  31. FENTANYL [Concomitant]
     Dosage: 250.0 MCG
     Dates: start: 20050622
  32. OXYCODONE [Concomitant]
  33. FUROSEMIDE [Concomitant]
  34. AMLODIPINE [Concomitant]
  35. FRESH FROZEN PLASMA [Concomitant]
     Dosage: 4 U, UNK
     Route: 042
     Dates: start: 20050622
  36. CLINDAMYCIN [Concomitant]
     Dosage: 600 MG, UNK
     Route: 042
     Dates: start: 20050622
  37. PROTAMINE SULFATE [Concomitant]
     Dosage: 400 MG, UNK
     Route: 042
     Dates: start: 20050622
  38. PROTAMINE SULFATE [Concomitant]
     Dosage: 50 MG, UNK
     Route: 042
     Dates: start: 20050622
  39. METHADONE [Concomitant]
  40. FOLATE SODIUM [Concomitant]
  41. HYDRALAZINE [Concomitant]
  42. FENTANYL [Concomitant]
     Dosage: 500.0 MCG
     Route: 042
     Dates: start: 20050622
  43. CALCIUM [Concomitant]
     Dosage: 500 MG, UNK
     Route: 042
     Dates: start: 20050622
  44. PROPOFOL [Concomitant]
     Dosage: 45 MCG/KG/MINUTE
     Route: 042
     Dates: start: 20050622
  45. BACLOFEN [Concomitant]
  46. AMBIEN [Concomitant]
  47. ACETYLSALICYLIC ACID SRT [Concomitant]
  48. CARVEDILOL [Concomitant]
  49. POTASSIUM CHLORIDE [Concomitant]
  50. VASOPRESSIN [Concomitant]
     Dosage: 2 U, Q1HR
     Route: 042
     Dates: start: 20050622
  51. DOPAMINE HCL [Concomitant]
     Dosage: 2 MCG/KG/MINUTE
     Route: 042
     Dates: start: 20050622
  52. ISOPROTERENOL HCL [Concomitant]
     Dosage: 2.0 MCG/KG/MINUTE
     Route: 042
     Dates: start: 20050622
  53. ALBUMIN (HUMAN) [Concomitant]
     Dosage: 12.5 G, UNK
     Route: 042
     Dates: start: 20050622
  54. NORMAL SALINE [Concomitant]
     Dosage: UNK
     Route: 042
     Dates: start: 20050622
  55. CALCIUM [Concomitant]
     Dosage: 1000 MG
     Route: 042
     Dates: start: 20050622
  56. SOLU-MEDROL [Concomitant]
     Dosage: 500 MG, UNK
     Route: 042
     Dates: start: 20050622
  57. PHENYLEPHRINE HCL [Concomitant]
     Dosage: 50 MCG
     Route: 042
     Dates: start: 20050622

REACTIONS (10)
  - RENAL FAILURE [None]
  - INJURY [None]
  - STRESS [None]
  - RENAL IMPAIRMENT [None]
  - RENAL INJURY [None]
  - PAIN [None]
  - FEAR [None]
  - ANXIETY [None]
  - UNEVALUABLE EVENT [None]
  - EMOTIONAL DISTRESS [None]
